FAERS Safety Report 6936255-9 (Version None)
Quarter: 2010Q3

REPORT INFORMATION
  Report Type: 
  Country: None (occurrence: None)
  Receive Date: 20100823
  Receipt Date: 20100811
  Transmission Date: 20110219
  Serious: Yes (Life-Threatening)
  Sender: FDA-Public Use
  Company Number: JP-PFIZER INC-2010101173

PATIENT
  Age: 71 Year
  Sex: Male

DRUGS (3)
  1. DALACIN [Suspect]
     Route: 042
  2. FLUNARIN [Concomitant]
  3. GASTER [Concomitant]

REACTIONS (1)
  - OCULOMUCOCUTANEOUS SYNDROME [None]
